FAERS Safety Report 18221507 (Version 5)
Quarter: 2020Q4

REPORT INFORMATION
  Report Type: Spontaneous
  Country: US (occurrence: US)
  Receive Date: 20200902
  Receipt Date: 20201231
  Transmission Date: 20210113
  Serious: No
  Sender: FDA-Public Use
  Company Number: US-PFIZER INC-2020339787

PATIENT
  Age: 58 Year
  Sex: Female

DRUGS (1)
  1. IBRANCE [Suspect]
     Active Substance: PALBOCICLIB
     Indication: BREAST CANCER FEMALE
     Dosage: 100 MG, CYCLIC, [QD (ONCE A DAY) X21DAYS]
     Dates: start: 20190605

REACTIONS (3)
  - Platelet count decreased [Unknown]
  - Balance disorder [Unknown]
  - Fatigue [Not Recovered/Not Resolved]
